FAERS Safety Report 6531279-8 (Version None)
Quarter: 2010Q1

REPORT INFORMATION
  Report Type: 
  Country: None (occurrence: None)
  Receive Date: 20100108
  Receipt Date: 20100104
  Transmission Date: 20100710
  Serious: Yes (Hospitalization)
  Sender: FDA-Public Use
  Company Number: FR-BAYER-201010501GPV

PATIENT
  Age: 64 Year
  Sex: Male

DRUGS (6)
  1. NEXAVAR [Suspect]
     Indication: HEPATIC NEOPLASM MALIGNANT
     Dosage: 200 MG, 4 DAYS
     Route: 048
     Dates: start: 20080310, end: 20080325
  2. METFORMIN HCL [Concomitant]
  3. INSULIN [Concomitant]
  4. DIFFU-K [Concomitant]
  5. OMEPRAZOLE [Concomitant]
  6. ALDALIX [Concomitant]

REACTIONS (1)
  - HEPATIC ENCEPHALOPATHY [None]
